FAERS Safety Report 11467276 (Version 1)
Quarter: 2015Q3

REPORT INFORMATION
  Report Type: Spontaneous
  Country: None (occurrence: TW)
  Receive Date: 20150908
  Receipt Date: 20150908
  Transmission Date: 20151125
  Serious: Yes (Death)
  Sender: FDA-Public Use
  Company Number: TW-HOSPIRA-2995356

PATIENT
  Sex: Female

DRUGS (5)
  1. HYDROXYCHLOROQUINE [Suspect]
     Active Substance: HYDROXYCHLOROQUINE
     Indication: UTERINE LEIOMYOSARCOMA
  2. CYCLOPHOSPHAMIDE. [Suspect]
     Active Substance: CYCLOPHOSPHAMIDE
     Indication: UTERINE LEIOMYOSARCOMA
     Dosage: EVERY OTHER DAY
     Route: 048
  3. RAPAMYCIN [Suspect]
     Active Substance: SIROLIMUS
     Indication: UTERINE LEIOMYOSARCOMA
  4. ETOPOSIDE. [Suspect]
     Active Substance: ETOPOSIDE
     Indication: UTERINE LEIOMYOSARCOMA
     Dosage: EVERY OTHER DAY
     Route: 048
  5. GEMCITABINE HYDROCHLORIDE. [Suspect]
     Active Substance: GEMCITABINE HYDROCHLORIDE
     Indication: UTERINE LEIOMYOSARCOMA
     Route: 042

REACTIONS (1)
  - Hepatitis B [Fatal]
